FAERS Safety Report 4448256-3 (Version None)
Quarter: 2004Q3

REPORT INFORMATION
  Report Type: 
  Country: None (occurrence: None)
  Receive Date: 20040910
  Receipt Date: 20040825
  Transmission Date: 20050211
  Serious: Yes (Other)
  Sender: FDA-Public Use
  Company Number: 200410712BCA

PATIENT
  Age: 58 Year
  Sex: Male

DRUGS (248)
  1. PLASBUMIN-25 [Suspect]
     Dosage: SEE IMAGE
     Route: 042
     Dates: start: 19900921, end: 19900928
  2. PLASBUMIN-25 [Suspect]
     Dosage: SEE IMAGE
     Route: 042
     Dates: start: 19900926, end: 19901008
  3. PLASBUMIN-25 [Suspect]
     Dosage: SEE IMAGE
     Route: 042
     Dates: start: 19901013, end: 19901020
  4. PLASBUMIN-25 [Suspect]
     Dosage: SEE IMAGE
     Route: 042
     Dates: start: 19901030, end: 19901101
  5. PLASBUMIN-25 [Suspect]
     Dosage: SEE IMAGE
     Route: 042
     Dates: start: 19900304
  6. PLASBUMIN-25 [Suspect]
     Dosage: SEE IMAGE
     Route: 042
     Dates: start: 19900307
  7. PLASBUMIN-25 [Suspect]
     Dosage: SEE IMAGE
     Route: 042
     Dates: start: 19900308
  8. PLASBUMIN-25 [Suspect]
     Dosage: SEE IMAGE
     Route: 042
     Dates: start: 19900920
  9. PLASBUMIN-25 [Suspect]
     Dosage: SEE IMAGE
     Route: 042
     Dates: start: 19900930
  10. PLASBUMIN-25 [Suspect]
     Dosage: SEE IMAGE
     Route: 042
     Dates: start: 19901031
  11. PLASBUMIN-25 [Suspect]
  12. PLASBUMIN-25 [Suspect]
  13. PLASBUMIN-25 [Suspect]
  14. PLASBUMIN-25 [Suspect]
  15. PLASBUMIN-25 [Suspect]
  16. PLASBUMIN-25 [Suspect]
  17. PLASBUMIN-25 [Suspect]
  18. PLASBUMIN-25 [Suspect]
  19. PLASBUMIN-25 [Suspect]
  20. PLASBUMIN-5 [Suspect]
     Dosage: 500 ML, INTRAVENOUS
     Route: 042
     Dates: start: 19900921
  21. PLASBUMIN-5 [Suspect]
     Dosage: 500 ML, INTRAVENOUS
     Route: 042
     Dates: start: 19960309
  22. PLASBUMIN-5 [Suspect]
     Dosage: 500 ML, INTRAVENOUS
     Route: 042
     Dates: start: 19960309
  23. PLASBUMIN-5 [Suspect]
  24. PLASBUMIN-5 [Suspect]
  25. RED BLOOD CELLS [Suspect]
     Dosage: INTRAVENOUS
     Route: 042
     Dates: start: 19900621
  26. RED BLOOD CELLS [Suspect]
     Dosage: INTRAVENOUS
     Route: 042
     Dates: start: 19900621
  27. RED BLOOD CELLS [Suspect]
     Dosage: INTRAVENOUS
     Route: 042
     Dates: start: 19900623
  28. RED BLOOD CELLS [Suspect]
     Dosage: INTRAVENOUS
     Route: 042
     Dates: start: 19900623
  29. RED BLOOD CELLS [Suspect]
     Dosage: INTRAVENOUS
     Route: 042
     Dates: start: 19900920
  30. RED BLOOD CELLS [Suspect]
     Dosage: INTRAVENOUS
     Route: 042
     Dates: start: 19900920
  31. RED BLOOD CELLS [Suspect]
     Dosage: INTRAVENOUS
     Route: 042
     Dates: start: 19900920
  32. RED BLOOD CELLS [Suspect]
     Dosage: INTRAVENOUS
     Route: 042
     Dates: start: 19900920
  33. RED BLOOD CELLS [Suspect]
     Dosage: INTRAVENOUS
     Route: 042
     Dates: start: 19900921
  34. RED BLOOD CELLS [Suspect]
     Dosage: INTRAVENOUS
     Route: 042
     Dates: start: 19900921
  35. RED BLOOD CELLS [Suspect]
     Dosage: INTRAVENOUS
     Route: 042
     Dates: start: 19900921
  36. RED BLOOD CELLS [Suspect]
     Dosage: INTRAVENOUS
     Route: 042
     Dates: start: 19900921
  37. RED BLOOD CELLS [Suspect]
     Dosage: INTRAVENOUS
     Route: 042
     Dates: start: 19900921
  38. RED BLOOD CELLS [Suspect]
     Dosage: INTRAVENOUS
     Route: 042
     Dates: start: 19900921
  39. RED BLOOD CELLS [Suspect]
     Dosage: INTRAVENOUS
     Route: 042
     Dates: start: 19900921
  40. RED BLOOD CELLS [Suspect]
     Dosage: INTRAVENOUS
     Route: 042
     Dates: start: 19900921
  41. RED BLOOD CELLS [Suspect]
     Dosage: INTRAVENOUS
     Route: 042
     Dates: start: 19900921
  42. RED BLOOD CELLS [Suspect]
     Dosage: INTRAVENOUS
     Route: 042
     Dates: start: 19900921
  43. RED BLOOD CELLS [Suspect]
     Dosage: INTRAVENOUS
     Route: 042
     Dates: start: 19900921
  44. RED BLOOD CELLS [Suspect]
     Dosage: INTRAVENOUS
     Route: 042
     Dates: start: 19900922
  45. RED BLOOD CELLS [Suspect]
     Dosage: INTRAVENOUS
     Route: 042
     Dates: start: 19900922
  46. RED BLOOD CELLS [Suspect]
     Dosage: INTRAVENOUS
     Route: 042
     Dates: start: 19900922
  47. RED BLOOD CELLS [Suspect]
     Dosage: INTRAVENOUS
     Route: 042
     Dates: start: 19900929
  48. RED BLOOD CELLS [Suspect]
     Dosage: INTRAVENOUS
     Route: 042
     Dates: start: 19900929
  49. RED BLOOD CELLS [Suspect]
     Dosage: INTRAVENOUS
     Route: 042
     Dates: start: 19901009
  50. RED BLOOD CELLS [Suspect]
     Dosage: INTRAVENOUS
     Route: 042
     Dates: start: 19901009
  51. RED BLOOD CELLS [Suspect]
     Dosage: INTRAVENOUS
     Route: 042
     Dates: start: 19960308
  52. RED BLOOD CELLS [Suspect]
     Dosage: INTRAVENOUS
     Route: 042
     Dates: start: 19960308
  53. RED BLOOD CELLS [Suspect]
     Dosage: INTRAVENOUS
     Route: 042
     Dates: start: 19960309
  54. RED BLOOD CELLS [Suspect]
     Dosage: INTRAVENOUS
     Route: 042
     Dates: start: 19960309
  55. RED BLOOD CELLS [Suspect]
     Dosage: INTRAVENOUS
     Route: 042
     Dates: start: 19960309
  56. RED BLOOD CELLS [Suspect]
     Dosage: INTRAVENOUS
     Route: 042
     Dates: start: 19960315
  57. RED BLOOD CELLS [Suspect]
     Dosage: INTRAVENOUS
     Route: 042
     Dates: start: 19960315
  58. RED BLOOD CELLS [Suspect]
  59. RED BLOOD CELLS [Suspect]
  60. RED BLOOD CELLS [Suspect]
  61. RED BLOOD CELLS [Suspect]
  62. RED BLOOD CELLS [Suspect]
  63. RED BLOOD CELLS [Suspect]
  64. RED BLOOD CELLS [Suspect]
  65. RED BLOOD CELLS [Suspect]
  66. RED BLOOD CELLS [Suspect]
  67. RED BLOOD CELLS [Suspect]
  68. RED BLOOD CELLS [Suspect]
  69. RED BLOOD CELLS [Suspect]
  70. RED BLOOD CELLS [Suspect]
  71. RED BLOOD CELLS [Suspect]
  72. RED BLOOD CELLS [Suspect]
  73. RED BLOOD CELLS [Suspect]
  74. RED BLOOD CELLS [Suspect]
  75. RED BLOOD CELLS [Suspect]
  76. RED BLOOD CELLS [Suspect]
  77. RED BLOOD CELLS [Suspect]
  78. RED BLOOD CELLS [Suspect]
  79. RED BLOOD CELLS [Suspect]
  80. RED BLOOD CELLS [Suspect]
  81. RED BLOOD CELLS [Suspect]
  82. RED BLOOD CELLS [Suspect]
  83. RED BLOOD CELLS [Suspect]
  84. RED BLOOD CELLS [Suspect]
  85. RED BLOOD CELLS [Suspect]
  86. RED BLOOD CELLS [Suspect]
  87. RED BLOOD CELLS [Suspect]
  88. RED BLOOD CELLS [Suspect]
  89. RED BLOOD CELLS [Suspect]
  90. FRESH FROZEN PLASMA [Suspect]
     Dosage: INTRAVENOUS
     Route: 042
     Dates: start: 19900621
  91. FRESH FROZEN PLASMA [Suspect]
     Dosage: INTRAVENOUS
     Route: 042
     Dates: start: 19900621
  92. FRESH FROZEN PLASMA [Suspect]
     Dosage: INTRAVENOUS
     Route: 042
     Dates: start: 19900921
  93. FRESH FROZEN PLASMA [Suspect]
     Dosage: INTRAVENOUS
     Route: 042
     Dates: start: 19900921
  94. FRESH FROZEN PLASMA [Suspect]
     Dosage: INTRAVENOUS
     Route: 042
     Dates: start: 19900921
  95. FRESH FROZEN PLASMA [Suspect]
     Dosage: INTRAVENOUS
     Route: 042
     Dates: start: 19900921
  96. FRESH FROZEN PLASMA [Suspect]
     Dosage: INTRAVENOUS
     Route: 042
     Dates: start: 19900921
  97. FRESH FROZEN PLASMA [Suspect]
     Dosage: INTRAVENOUS
     Route: 042
     Dates: start: 19900921
  98. FRESH FROZEN PLASMA [Suspect]
     Dosage: INTRAVENOUS
     Route: 042
     Dates: start: 19900922
  99. FRESH FROZEN PLASMA [Suspect]
     Dosage: INTRAVENOUS
     Route: 042
     Dates: start: 19900922
  100. FRESH FROZEN PLASMA [Suspect]
     Dosage: INTRAVENOUS
     Route: 042
     Dates: start: 19900922
  101. FRESH FROZEN PLASMA [Suspect]
     Dosage: INTRAVENOUS
     Route: 042
     Dates: start: 19901012
  102. FRESH FROZEN PLASMA [Suspect]
     Dosage: INTRAVENOUS
     Route: 042
     Dates: start: 19901012
  103. FRESH FROZEN PLASMA [Suspect]
     Dosage: INTRAVENOUS
     Route: 042
     Dates: start: 19901012
  104. FRESH FROZEN PLASMA [Suspect]
     Dosage: INTRAVENOUS
     Route: 042
     Dates: start: 19901012
  105. FRESH FROZEN PLASMA [Suspect]
     Dosage: INTRAVENOUS
     Route: 042
     Dates: start: 19901012
  106. FRESH FROZEN PLASMA [Suspect]
     Dosage: INTRAVENOUS
     Route: 042
     Dates: start: 19901013
  107. FRESH FROZEN PLASMA [Suspect]
     Dosage: INTRAVENOUS
     Route: 042
     Dates: start: 19901013
  108. FRESH FROZEN PLASMA [Suspect]
     Dosage: INTRAVENOUS
     Route: 042
     Dates: start: 19901013
  109. FRESH FROZEN PLASMA [Suspect]
     Dosage: INTRAVENOUS
     Route: 042
     Dates: start: 19901015
  110. FRESH FROZEN PLASMA [Suspect]
     Dosage: INTRAVENOUS
     Route: 042
     Dates: start: 19901015
  111. FRESH FROZEN PLASMA [Suspect]
     Dosage: INTRAVENOUS
     Route: 042
     Dates: start: 19901015
  112. FRESH FROZEN PLASMA [Suspect]
     Dosage: INTRAVENOUS
     Route: 042
     Dates: start: 19960303
  113. FRESH FROZEN PLASMA [Suspect]
  114. FRESH FROZEN PLASMA [Suspect]
  115. FRESH FROZEN PLASMA [Suspect]
  116. FRESH FROZEN PLASMA [Suspect]
  117. FRESH FROZEN PLASMA [Suspect]
  118. FRESH FROZEN PLASMA [Suspect]
  119. FRESH FROZEN PLASMA [Suspect]
  120. FRESH FROZEN PLASMA [Suspect]
  121. FRESH FROZEN PLASMA [Suspect]
  122. FRESH FROZEN PLASMA [Suspect]
  123. FRESH FROZEN PLASMA [Suspect]
  124. FRESH FROZEN PLASMA [Suspect]
  125. FRESH FROZEN PLASMA [Suspect]
  126. FRESH FROZEN PLASMA [Suspect]
  127. FRESH FROZEN PLASMA [Suspect]
  128. FRESH FROZEN PLASMA [Suspect]
  129. FRESH FROZEN PLASMA [Suspect]
  130. FRESH FROZEN PLASMA [Suspect]
  131. FRESH FROZEN PLASMA [Suspect]
  132. FRESH FROZEN PLASMA [Suspect]
  133. FRESH FROZEN PLASMA [Suspect]
  134. FRESH FROZEN PLASMA [Suspect]
  135. PLATELETS (PLATELETS, HUMAN BLOOD) [Suspect]
     Dosage: INTRAVENOUS
     Route: 042
     Dates: start: 19900921
  136. PLATELETS (PLATELETS, HUMAN BLOOD) [Suspect]
     Dosage: INTRAVENOUS
     Route: 042
     Dates: start: 19900921
  137. PLATELETS (PLATELETS, HUMAN BLOOD) [Suspect]
     Dosage: INTRAVENOUS
     Route: 042
     Dates: start: 19900921
  138. PLATELETS (PLATELETS, HUMAN BLOOD) [Suspect]
     Dosage: INTRAVENOUS
     Route: 042
     Dates: start: 19900921
  139. PLATELETS (PLATELETS, HUMAN BLOOD) [Suspect]
     Dosage: INTRAVENOUS
     Route: 042
     Dates: start: 19900921
  140. PLATELETS (PLATELETS, HUMAN BLOOD) [Suspect]
     Dosage: INTRAVENOUS
     Route: 042
     Dates: start: 19900921
  141. PLATELETS (PLATELETS, HUMAN BLOOD) [Suspect]
     Dosage: INTRAVENOUS
     Route: 042
     Dates: start: 19900921
  142. PLATELETS (PLATELETS, HUMAN BLOOD) [Suspect]
     Dosage: INTRAVENOUS
     Route: 042
     Dates: start: 19900921
  143. PLATELETS (PLATELETS, HUMAN BLOOD) [Suspect]
     Dosage: INTRAVENOUS
     Route: 042
     Dates: start: 19900921
  144. PLATELETS (PLATELETS, HUMAN BLOOD) [Suspect]
     Dosage: INTRAVENOUS
     Route: 042
     Dates: start: 19900921
  145. PLATELETS (PLATELETS, HUMAN BLOOD) [Suspect]
     Dosage: INTRAVENOUS
     Route: 042
     Dates: start: 19900921
  146. PLATELETS (PLATELETS, HUMAN BLOOD) [Suspect]
     Dosage: INTRAVENOUS
     Route: 042
     Dates: start: 19900921
  147. PLATELETS (PLATELETS, HUMAN BLOOD) [Suspect]
     Dosage: INTRAVENOUS
     Route: 042
     Dates: start: 19900925
  148. PLATELETS (PLATELETS, HUMAN BLOOD) [Suspect]
     Dosage: INTRAVENOUS
     Route: 042
     Dates: start: 19900925
  149. PLATELETS (PLATELETS, HUMAN BLOOD) [Suspect]
     Dosage: INTRAVENOUS
     Route: 042
     Dates: start: 19900925
  150. PLATELETS (PLATELETS, HUMAN BLOOD) [Suspect]
     Dosage: INTRAVENOUS
     Route: 042
     Dates: start: 19900925
  151. PLATELETS (PLATELETS, HUMAN BLOOD) [Suspect]
     Dosage: INTRAVENOUS
     Route: 042
     Dates: start: 19900925
  152. PLATELETS (PLATELETS, HUMAN BLOOD) [Suspect]
     Dosage: INTRAVENOUS
     Route: 042
     Dates: start: 19900925
  153. PLATELETS (PLATELETS, HUMAN BLOOD) [Suspect]
  154. PLATELETS (PLATELETS, HUMAN BLOOD) [Suspect]
  155. PLATELETS (PLATELETS, HUMAN BLOOD) [Suspect]
  156. PLATELETS (PLATELETS, HUMAN BLOOD) [Suspect]
  157. PLATELETS (PLATELETS, HUMAN BLOOD) [Suspect]
  158. PLATELETS (PLATELETS, HUMAN BLOOD) [Suspect]
  159. PLATELETS (PLATELETS, HUMAN BLOOD) [Suspect]
  160. PLATELETS (PLATELETS, HUMAN BLOOD) [Suspect]
  161. PLATELETS (PLATELETS, HUMAN BLOOD) [Suspect]
  162. PLATELETS (PLATELETS, HUMAN BLOOD) [Suspect]
  163. PLATELETS (PLATELETS, HUMAN BLOOD) [Suspect]
  164. PLATELETS (PLATELETS, HUMAN BLOOD) [Suspect]
  165. PLATELETS (PLATELETS, HUMAN BLOOD) [Suspect]
  166. PLATELETS (PLATELETS, HUMAN BLOOD) [Suspect]
  167. PLATELETS (PLATELETS, HUMAN BLOOD) [Suspect]
  168. PLATELETS (PLATELETS, HUMAN BLOOD) [Suspect]
  169. PLATELETS (PLATELETS, HUMAN BLOOD) [Suspect]
  170. CRYOPRECIPITATED AHF [Suspect]
     Dosage: INTRAVENOUS
     Route: 042
     Dates: start: 19900921
  171. CRYOPRECIPITATED AHF [Suspect]
     Dosage: INTRAVENOUS
     Route: 042
     Dates: start: 19900921
  172. CRYOPRECIPITATED AHF [Suspect]
     Dosage: INTRAVENOUS
     Route: 042
     Dates: start: 19900921
  173. CRYOPRECIPITATED AHF [Suspect]
     Dosage: INTRAVENOUS
     Route: 042
     Dates: start: 19900921
  174. CRYOPRECIPITATED AHF [Suspect]
     Dosage: INTRAVENOUS
     Route: 042
     Dates: start: 19900921
  175. CRYOPRECIPITATED AHF [Suspect]
     Dosage: INTRAVENOUS
     Route: 042
     Dates: start: 19900921
  176. CRYOPRECIPITATED AHF [Suspect]
     Dosage: INTRAVENOUS
     Route: 042
     Dates: start: 19900921
  177. CRYOPRECIPITATED AHF [Suspect]
     Dosage: INTRAVENOUS
     Route: 042
     Dates: start: 19900921
  178. CRYOPRECIPITATED AHF [Suspect]
     Dosage: INTRAVENOUS
     Route: 042
     Dates: start: 19900921
  179. CRYOPRECIPITATED AHF [Suspect]
     Dosage: INTRAVENOUS
     Route: 042
     Dates: start: 19900921
  180. CRYOPRECIPITATED AHF [Suspect]
     Dosage: INTRAVENOUS
     Route: 042
     Dates: start: 19900921
  181. CRYOPRECIPITATED AHF [Suspect]
     Dosage: INTRAVENOUS
     Route: 042
     Dates: start: 19900921
  182. CRYOPRECIPITATED AHF [Suspect]
     Dosage: INTRAVENOUS
     Route: 042
     Dates: start: 19900921
  183. CRYOPRECIPITATED AHF [Suspect]
     Dosage: INTRAVENOUS
     Route: 042
     Dates: start: 19900921
  184. CRYOPRECIPITATED AHF [Suspect]
     Dosage: INTRAVENOUS
     Route: 042
     Dates: start: 19900921
  185. CRYOPRECIPITATED AHF [Suspect]
     Dosage: INTRAVENOUS
     Route: 042
     Dates: start: 19900921
  186. CRYOPRECIPITATED AHF [Suspect]
     Dosage: INTRAVENOUS
     Route: 042
     Dates: start: 19900921
  187. CRYOPRECIPITATED AHF [Suspect]
     Dosage: INTRAVENOUS
     Route: 042
     Dates: start: 19900921
  188. CRYOPRECIPITATED AHF [Suspect]
     Dosage: INTRAVENOUS
     Route: 042
     Dates: start: 19900921
  189. CRYOPRECIPITATED AHF [Suspect]
     Dosage: INTRAVENOUS
     Route: 042
     Dates: start: 19900921
  190. CRYOPRECIPITATED AHF [Suspect]
     Dosage: INTRAVENOUS
     Route: 042
     Dates: start: 19900921
  191. CRYOPRECIPITATED AHF [Suspect]
     Dosage: INTRAVENOUS
     Route: 042
     Dates: start: 19900921
  192. CRYOPRECIPITATED AHF [Suspect]
     Dosage: INTRAVENOUS
     Route: 042
     Dates: start: 19900921
  193. CRYOPRECIPITATED AHF [Suspect]
     Dosage: INTRAVENOUS
     Route: 042
     Dates: start: 19900921
  194. CRYOPRECIPITATED AHF [Suspect]
     Dosage: INTRAVENOUS
     Route: 042
     Dates: start: 19900921
  195. CRYOPRECIPITATED AHF [Suspect]
     Dosage: INTRAVENOUS
     Route: 042
     Dates: start: 19900921
  196. CRYOPRECIPITATED AHF [Suspect]
     Dosage: INTRAVENOUS
     Route: 042
     Dates: start: 19900921
  197. CRYOPRECIPITATED AHF [Suspect]
     Dosage: INTRAVENOUS
     Route: 042
     Dates: start: 19900921
  198. CRYOPRECIPITATED AHF [Suspect]
     Dosage: INTRAVENOUS
     Route: 042
     Dates: start: 19900921
  199. CRYOPRECIPITATED AHF [Suspect]
     Dosage: INTRAVENOUS
     Route: 042
     Dates: start: 19900922
  200. CRYOPRECIPITATED AHF [Suspect]
     Dosage: INTRAVENOUS
     Route: 042
     Dates: start: 19900922
  201. CRYOPRECIPITATED AHF [Suspect]
     Dosage: INTRAVENOUS
     Route: 042
     Dates: start: 19900922
  202. CRYOPRECIPITATED AHF [Suspect]
     Dosage: INTRAVENOUS
     Route: 042
     Dates: start: 19900922
  203. CRYOPRECIPITATED AHF [Suspect]
     Dosage: INTRAVENOUS
     Route: 042
     Dates: start: 19900922
  204. CRYOPRECIPITATED AHF [Suspect]
     Dosage: INTRAVENOUS
     Route: 042
     Dates: start: 19900922
  205. CRYOPRECIPITATED AHF [Suspect]
     Dosage: INTRAVENOUS
     Route: 042
     Dates: start: 19900922
  206. CRYOPRECIPITATED AHF [Suspect]
     Dosage: INTRAVENOUS
     Route: 042
     Dates: start: 19900922
  207. CRYOPRECIPITATED AHF [Suspect]
     Dosage: INTRAVENOUS
     Route: 042
     Dates: start: 19900922
  208. CRYOPRECIPITATED AHF [Suspect]
     Dosage: INTRAVENOUS
     Route: 042
     Dates: start: 19900922
  209. CRYOPRECIPTATE (PLASMA PROTEIN FRACTION (HUMAN)) [Suspect]
  210. CRYOPRECIPITATED AHF [Suspect]
  211. CRYOPRECIPITATED AHF [Suspect]
  212. CRYOPRECIPITATED AHF [Suspect]
  213. CRYOPRECIPITATED AHF [Suspect]
  214. CRYOPRECIPITATED AHF [Suspect]
  215. CRYOPRECIPITATED AHF [Suspect]
  216. CRYOPRECIPITATED AHF [Suspect]
  217. CRYOPRECIPITATED AHF [Suspect]
  218. CRYOPRECIPITATED AHF [Suspect]
  219. CRYOPRECIPITATED AHF [Suspect]
  220. CRYOPRECIPITATED AHF [Suspect]
  221. CRYOPRECIPITATED AHF [Suspect]
  222. CRYOPRECIPITATED AHF [Suspect]
  223. CRYOPRECIPITATED AHF [Suspect]
  224. CRYOPRECIPITATED AHF [Suspect]
  225. CRYOPRECIPITATED AHF [Suspect]
  226. CRYOPRECIPITATED AHF [Suspect]
  227. CRYOPRECIPITATED AHF [Suspect]
  228. CRYOPRECIPITATED AHF [Suspect]
  229. CRYOPRECIPITATED AHF [Suspect]
  230. CRYOPRECIPITATED AHF [Suspect]
  231. CRYOPRECIPITATED AHF [Suspect]
  232. CRYOPRECIPITATED AHF [Suspect]
  233. CRYOPRECIPITATED AHF [Suspect]
  234. CRYOPRECIPITATED AHF [Suspect]
  235. CRYOPRECIPITATED AHF [Suspect]
  236. CRYOPRECIPITATED AHF [Suspect]
  237. CRYOPRECIPITATED AHF [Suspect]
  238. CRYOPRECIPITATED AHF [Suspect]
  239. CRYOPRECIPITATED AHF [Suspect]
  240. CRYOPRECIPITATED AHF [Suspect]
  241. CRYOPRECIPITATED AHF [Suspect]
  242. CRYOPRECIPITATED AHF [Suspect]
  243. CRYOPRECIPITATED AHF [Suspect]
  244. CRYOPRECIPITATED AHF [Suspect]
  245. CRYOPRECIPITATED AHF [Suspect]
  246. CRYOPRECIPITATED AHF [Suspect]
  247. CRYOPRECIPITATED AHF [Suspect]
  248. CRYOPRECIPTATE (PLASMA PROTEIN FRACTION (HUMAN)) [Suspect]

REACTIONS (1)
  - HEPATITIS C POSITIVE [None]
